FAERS Safety Report 24767884 (Version 1)
Quarter: 2024Q4

REPORT INFORMATION
  Report Type: Spontaneous
  Country: RO (occurrence: RO)
  Receive Date: 20241223
  Receipt Date: 20241223
  Transmission Date: 20250114
  Serious: Yes (Death, Other)
  Sender: SHIONOGI
  Company Number: RO-shionogi-202400004182

PATIENT
  Age: 76 Year

DRUGS (4)
  1. CEFIDEROCOL [Suspect]
     Active Substance: CEFIDEROCOL
     Indication: Klebsiella infection
  2. CEFIDEROCOL [Suspect]
     Active Substance: CEFIDEROCOL
     Indication: Pulmonary sepsis
  3. TIGECYCLINE [Suspect]
     Active Substance: TIGECYCLINE
     Indication: Klebsiella infection
  4. TIGECYCLINE [Suspect]
     Active Substance: TIGECYCLINE
     Indication: Pulmonary sepsis

REACTIONS (1)
  - Death [Fatal]
